FAERS Safety Report 23995152 (Version 1)
Quarter: 2024Q2

REPORT INFORMATION
  Report Type: Spontaneous
  Country: US (occurrence: US)
  Receive Date: 20240620
  Receipt Date: 20240620
  Transmission Date: 20240716
  Serious: Yes (Life-Threatening, Other)
  Sender: FDA-Public Use
  Company Number: US-PFIZER INC-PV202400079901

PATIENT
  Age: 40 Year
  Sex: Male

DRUGS (1)
  1. KETAMINE HYDROCHLORIDE [Suspect]
     Active Substance: KETAMINE HYDROCHLORIDE
     Dosage: UNK (SNORTING A LARGE DOSE OF KETAMINE)
     Route: 050

REACTIONS (2)
  - Anaemia [Recovered/Resolved]
  - Drug abuse [Unknown]
